FAERS Safety Report 6667068-3 (Version None)
Quarter: 2010Q2

REPORT INFORMATION
  Report Type: 
  Country: None (occurrence: None)
  Receive Date: 20100401
  Receipt Date: 20100318
  Transmission Date: 20101027
  Serious: Yes (Hospitalization, Other)
  Sender: FDA-Public Use
  Company Number: ACO_00645_2010

PATIENT
  Sex: Male

DRUGS (9)
  1. ZANAFLEX [Suspect]
     Indication: MUSCLE SPASMS
     Dosage: 4 MG QID, ORAL
     Route: 048
     Dates: start: 20080101
  2. ZANAFLEX [Suspect]
     Indication: PAIN
     Dosage: 4 MG QID, ORAL
     Route: 048
     Dates: start: 20080101
  3. ZANAFLEX [Suspect]
     Indication: MUSCLE SPASMS
     Dosage: 12 MG TID ORAL
     Route: 048
     Dates: end: 20100218
  4. ZANAFLEX [Suspect]
     Indication: PAIN
     Dosage: 12 MG TID ORAL
     Route: 048
     Dates: end: 20100218
  5. ZANAFLEX [Suspect]
     Indication: MUSCLE SPASMS
     Dosage: DF ORAL
     Route: 048
     Dates: start: 20100101
  6. ZANAFLEX [Suspect]
     Indication: PAIN
     Dosage: DF ORAL
     Route: 048
     Dates: start: 20100101
  7. HYDROCODONE BITARTRATE [Suspect]
     Indication: MUSCLE SPASMS
     Dosage: DF ORAL
     Route: 048
  8. HYDROCODONE BITARTRATE [Suspect]
     Indication: PAIN
     Dosage: DF ORAL
     Route: 048
  9. INSULIN [Concomitant]

REACTIONS (8)
  - DIABETES MELLITUS INADEQUATE CONTROL [None]
  - DIABETIC KETOACIDOSIS [None]
  - DRUG DEPENDENCE [None]
  - HYPERTENSION [None]
  - NAUSEA [None]
  - OVERDOSE [None]
  - VOMITING [None]
  - WITHDRAWAL SYNDROME [None]
